FAERS Safety Report 21159023 (Version 2)
Quarter: 2022Q3

REPORT INFORMATION
  Report Type: Report from Study
  Country: CA (occurrence: CA)
  Receive Date: 20220802
  Receipt Date: 20220811
  Transmission Date: 20221027
  Serious: Yes (Other)
  Sender: FDA-Public Use
  Company Number: CA-KYOWAKIRIN-2022BKK011983

PATIENT

DRUGS (6)
  1. CRYSVITA [Suspect]
     Active Substance: BUROSUMAB-TWZA
     Indication: Hereditary hypophosphataemic rickets
     Dosage: 10 MG / Q 2 WEEKS
     Route: 058
     Dates: start: 20220223, end: 20220309
  2. CRYSVITA [Suspect]
     Active Substance: BUROSUMAB-TWZA
     Dosage: 20 MG/ Q 2 WEEKS
     Route: 058
     Dates: start: 20220324, end: 20220504
  3. CRYSVITA [Suspect]
     Active Substance: BUROSUMAB-TWZA
     Dosage: 25 MG / Q 2 WEEKS
     Route: 058
     Dates: start: 20220518, end: 20220713
  4. CRYSVITA [Suspect]
     Active Substance: BUROSUMAB-TWZA
     Dosage: 30 MG / Q 2 WEEKS
     Route: 058
     Dates: start: 20220614
  5. CRYSVITA [Suspect]
     Active Substance: BUROSUMAB-TWZA
     Dosage: 30 MG / Q 2 WEEKS
     Route: 058
     Dates: start: 20220727
  6. VITAMIN D NOS [Suspect]
     Active Substance: VITAMIN D NOS
     Indication: Product used for unknown indication
     Dosage: UNK
     Route: 065

REACTIONS (3)
  - Rickets [Unknown]
  - Contraindicated product administered [Unknown]
  - Bone deformity [Unknown]

NARRATIVE: CASE EVENT DATE: 20220628
